FAERS Safety Report 22318347 (Version 1)
Quarter: 2023Q2

REPORT INFORMATION
  Report Type: Report from Study
  Country: IT (occurrence: IT)
  Receive Date: 20230515
  Receipt Date: 20230515
  Transmission Date: 20230721
  Serious: Yes (Hospitalization)
  Sender: FDA-Public Use
  Company Number: IT-JNJFOC-20230516559

PATIENT
  Age: 74 Year
  Sex: Male

DRUGS (9)
  1. DARZALEX [Suspect]
     Active Substance: DARATUMUMAB
     Indication: Plasma cell myeloma
     Route: 065
     Dates: start: 20191127, end: 20220729
  2. DEXAMETHASONE [Suspect]
     Active Substance: DEXAMETHASONE
     Indication: Plasma cell myeloma
     Route: 065
     Dates: start: 20191127, end: 20220819
  3. LENALIDOMIDE [Suspect]
     Active Substance: LENALIDOMIDE
     Indication: Plasma cell myeloma
     Route: 065
     Dates: start: 20191127, end: 20220818
  4. NEURONTIN [Concomitant]
     Active Substance: GABAPENTIN
     Dates: start: 20210720
  5. ESOMEPRAZOLE [Concomitant]
     Active Substance: ESOMEPRAZOLE
     Indication: Prophylaxis
     Dates: start: 20200218
  6. ASPIRIN [Concomitant]
     Active Substance: ASPIRIN
     Indication: Prophylaxis
     Dates: start: 20190501
  7. ACYCLOVIR [Concomitant]
     Active Substance: ACYCLOVIR
     Indication: Prophylaxis
     Dates: start: 20190501
  8. BACTRIM [Concomitant]
     Active Substance: SULFAMETHOXAZOLE\TRIMETHOPRIM
     Indication: Prophylaxis
     Dates: start: 20190501
  9. ERYTHROPOIETIN [Concomitant]
     Active Substance: ERYTHROPOIETIN
     Indication: Prophylaxis
     Dates: start: 20201030

REACTIONS (1)
  - COVID-19 [Recovered/Resolved]

NARRATIVE: CASE EVENT DATE: 20220901
